FAERS Safety Report 4635795-5 (Version None)
Quarter: 2005Q2

REPORT INFORMATION
  Report Type: 
  Country: None (occurrence: None)
  Receive Date: 20050413
  Receipt Date: 20050329
  Transmission Date: 20051028
  Serious: Yes (Hospitalization)
  Sender: FDA-Public Use
  Company Number: B0376118A

PATIENT
  Age: 15 Year
  Sex: Female

DRUGS (3)
  1. LITHIUM SALT (LITHIUM SALT) [Suspect]
     Indication: BIPOLAR DISORDER
  2. MINOCYCLINE HCL [Suspect]
     Indication: ACNE
     Dosage: 75 MG/TWICE PER DAY
  3. QUETIAPINE [Concomitant]

REACTIONS (8)
  - BENIGN INTRACRANIAL HYPERTENSION [None]
  - EYE PAIN [None]
  - HEADACHE [None]
  - HYPOAESTHESIA [None]
  - MUSCULOSKELETAL STIFFNESS [None]
  - PARAESTHESIA [None]
  - SLEEP DISORDER DUE TO GENERAL MEDICAL CONDITION, INSOMNIA TYPE [None]
  - VISION BLURRED [None]
